FAERS Safety Report 17610133 (Version 1)
Quarter: 2020Q1

REPORT INFORMATION
  Report Type: Spontaneous
  Country: US (occurrence: US)
  Receive Date: 20200330
  Receipt Date: 20200330
  Transmission Date: 20200409
  Serious: No
  Sender: FDA-Public Use
  Company Number: None

PATIENT
  Age: 46 Year
  Sex: Female

DRUGS (1)
  1. SUTENT [Suspect]
     Active Substance: SUNITINIB MALATE
     Dosage: ?          OTHER DOSE:37.5;?
     Route: 048
     Dates: start: 201902

REACTIONS (2)
  - Therapy cessation [None]
  - Stomatitis [None]

NARRATIVE: CASE EVENT DATE: 20200330
